FAERS Safety Report 16049475 (Version 2)
Quarter: 2020Q3

REPORT INFORMATION
  Report Type: Report from Study
  Country: US (occurrence: US)
  Receive Date: 20190307
  Receipt Date: 20191127
  Transmission Date: 20201104
  Serious: Yes (Other)
  Sender: FDA-Public Use
  Company Number: US-TEVA-2019-US-1019696

PATIENT
  Age: 75 Year
  Sex: Male

DRUGS (3)
  1. AMOXICILLIN/CLAVULANIC ACID [Suspect]
     Active Substance: AMOXICILLIN\CLAVULANIC ACID
     Dosage: 500 MILLIGRAM DAILY; FOR 5 DAYS
     Route: 065
  2. HYDRALAZINE [Suspect]
     Active Substance: HYDRALAZINE HYDROCHLORIDE
     Indication: HYPERTENSION
     Dosage: 75 MILLIGRAM DAILY;
     Route: 065
  3. TREMELIMUMAB. [Suspect]
     Active Substance: TREMELIMUMAB
     Indication: METASTATIC RENAL CELL CARCINOMA
     Dosage: TWO DOSES
     Route: 065

REACTIONS (6)
  - Dermatitis [Recovered/Resolved]
  - Pneumonitis [Recovered/Resolved]
  - Off label use [Unknown]
  - Acute kidney injury [Recovering/Resolving]
  - Tubulointerstitial nephritis [Recovering/Resolving]
  - Glomerulonephritis rapidly progressive [Recovering/Resolving]
